FAERS Safety Report 17113178 (Version 3)
Quarter: 2020Q1

REPORT INFORMATION
  Report Type: Spontaneous
  Country: IE (occurrence: IE)
  Receive Date: 20191204
  Receipt Date: 20200112
  Transmission Date: 20200409
  Serious: Yes (Death, Life-Threatening, Other)
  Sender: FDA-Public Use
  Company Number: IE-BEH-2019109842

PATIENT
  Age: 16 Day
  Sex: Male
  Weight: 1.6 kg

DRUGS (37)
  1. POTASSIUM CHLORIDE. [Suspect]
     Active Substance: POTASSIUM CHLORIDE
     Dosage: UNK
     Route: 042
     Dates: start: 20191008
  2. GLUCOSE [Suspect]
     Active Substance: DEXTROSE
     Dosage: UNK
     Route: 042
     Dates: start: 20191008
  3. GLUCOSE [Suspect]
     Active Substance: DEXTROSE
     Dosage: UNK
     Route: 042
     Dates: start: 20191008
  4. WATER FOR INJECTION [Suspect]
     Active Substance: WATER
     Dosage: UNK
     Route: 042
     Dates: start: 20191008
  5. CALCIUM GLUCONATE. [Suspect]
     Active Substance: CALCIUM GLUCONATE
     Dosage: UNK
     Route: 042
     Dates: start: 20191008
  6. PEDITRACE [Suspect]
     Active Substance: CUPRIC CHLORIDE\MANGANESE CHLORIDE\POTASSIUM IODIDE\SODIUM FLUORIDE\SODIUM SELENITE\ZINC CHLORIDE
     Indication: PARENTERAL NUTRITION
     Dosage: UNK
     Route: 042
     Dates: start: 20191008
  7. SODIUM CHLORIDE. [Suspect]
     Active Substance: SODIUM CHLORIDE
     Dosage: UNK
     Route: 042
     Dates: start: 20191008
  8. VAMINOLACT [AMINO ACIDS NOS] [Suspect]
     Active Substance: AMINO ACIDS, SOURCE UNSPECIFIED
     Indication: PARENTERAL NUTRITION
     Dosage: UNK
     Route: 042
     Dates: start: 20191008
  9. WATER FOR INJECTION [Suspect]
     Active Substance: WATER
     Dosage: UNK
     Route: 042
     Dates: start: 20191008
  10. CALCIUM GLUCONATE. [Suspect]
     Active Substance: CALCIUM GLUCONATE
     Indication: PARENTERAL NUTRITION
     Dosage: UNK
     Route: 042
     Dates: start: 20191008
  11. ADDITRACE [Suspect]
     Active Substance: MINERALS
     Indication: PARENTERAL NUTRITION
     Route: 042
     Dates: start: 20191008
  12. PEDITRACE [Suspect]
     Active Substance: CUPRIC CHLORIDE\MANGANESE CHLORIDE\POTASSIUM IODIDE\SODIUM FLUORIDE\SODIUM SELENITE\ZINC CHLORIDE
     Dosage: UNK
     Route: 042
     Dates: start: 20191008
  13. SOLIVITO N [ASCORBIC ACID;BIOTIN;CYANOCOBALAMIN;FOLIC ACID;NICOTINAMID [Suspect]
     Active Substance: ASCORBIC ACID\BIOTIN\CYANOCOBALAMIN\FOLIC ACID\NIACINAMIDE\PANTOTHENIC ACID\PYRIDOXINE\RIBOFLAVIN\THIAMINE
     Indication: PARENTERAL NUTRITION
     Dosage: UNK
     Route: 042
     Dates: start: 20191008
  14. SOLIVITO N [ASCORBIC ACID;BIOTIN;CYANOCOBALAMIN;FOLIC ACID;NICOTINAMID [Suspect]
     Active Substance: ASCORBIC ACID\BIOTIN\CYANOCOBALAMIN\FOLIC ACID\NIACINAMIDE\PANTOTHENIC ACID\PYRIDOXINE\RIBOFLAVIN\THIAMINE
     Dosage: UNK
     Route: 042
     Dates: start: 20191008
  15. BUMETANIDE. [Suspect]
     Active Substance: BUMETANIDE
     Indication: ACUTE KIDNEY INJURY
     Route: 065
  16. SMOFLIPID [Suspect]
     Active Substance: FISH OIL\MEDIUM-CHAIN TRIGLYCERIDES\OLIVE OIL\SOYBEAN OIL
     Indication: PARENTERAL NUTRITION
     Route: 042
     Dates: start: 20191008
  17. GLUCOSE [Suspect]
     Active Substance: DEXTROSE
     Indication: PARENTERAL NUTRITION
     Dosage: UNK
     Route: 042
     Dates: start: 20191008
  18. SODIUM GLYCEROPHOSPHATE [Suspect]
     Active Substance: SODIUM GLYCEROPHOSPHATE
     Dosage: UNK
     Route: 042
     Dates: start: 20191008
  19. GLUCOSE [Suspect]
     Active Substance: DEXTROSE
     Dosage: UNK
     Route: 042
     Dates: start: 20191008
  20. MAGNESIUM SULPHATE [MAGNESIUM SULFATE] [Suspect]
     Active Substance: MAGNESIUM SULFATE
     Dosage: UNK
     Route: 042
     Dates: start: 20191008
  21. SOLIVITO N [ASCORBIC ACID;BIOTIN;CYANOCOBALAMIN;FOLIC ACID;NICOTINAMID [Suspect]
     Active Substance: ASCORBIC ACID\BIOTIN\CYANOCOBALAMIN\FOLIC ACID\NIACINAMIDE\PANTOTHENIC ACID\PYRIDOXINE\RIBOFLAVIN\THIAMINE
     Dosage: UNK
     Route: 042
     Dates: start: 20191008
  22. POTASSIUM CHLORIDE. [Suspect]
     Active Substance: POTASSIUM CHLORIDE
     Indication: PARENTERAL NUTRITION
     Dosage: UNK
     Route: 042
     Dates: start: 20191008
  23. POTASSIUM CHLORIDE. [Suspect]
     Active Substance: POTASSIUM CHLORIDE
     Dosage: UNK
     Route: 042
     Dates: start: 20191008
  24. SODIUM CHLORIDE. [Suspect]
     Active Substance: SODIUM CHLORIDE
     Indication: PARENTERAL NUTRITION
     Dosage: UNK
     Route: 042
     Dates: start: 20191008
  25. MAGNESIUM SULPHATE [MAGNESIUM SULFATE] [Suspect]
     Active Substance: MAGNESIUM SULFATE
     Indication: PARENTERAL NUTRITION
     Dosage: UNK
     Route: 042
     Dates: start: 20191008
  26. VAMINOLACT [AMINO ACIDS NOS] [Suspect]
     Active Substance: AMINO ACIDS, SOURCE UNSPECIFIED
     Dosage: UNK
     Route: 042
     Dates: start: 20191008
  27. WATER FOR INJECTION [Suspect]
     Active Substance: WATER
     Indication: PARENTERAL NUTRITION
     Dosage: UNK
     Route: 042
     Dates: start: 20191008
  28. SODIUM GLYCEROPHOSPHATE [Suspect]
     Active Substance: SODIUM GLYCEROPHOSPHATE
     Indication: PARENTERAL NUTRITION
     Dosage: UNK
     Route: 042
     Dates: start: 20191008
  29. AMINOVEN [Suspect]
     Active Substance: AMINO ACIDS, SOURCE UNSPECIFIED
     Indication: PARENTERAL NUTRITION
     Dosage: UNK
     Route: 042
     Dates: start: 20191008
  30. AMINOVEN [Suspect]
     Active Substance: AMINO ACIDS, SOURCE UNSPECIFIED
     Dosage: UNK
     Route: 042
     Dates: start: 20191008
  31. ALBUMIN HUMAN (INN) [Suspect]
     Active Substance: ALBUMIN HUMAN
     Indication: ACUTE KIDNEY INJURY
     Dosage: ALBUMIN X2
     Route: 065
  32. VAMINOLACT [AMINO ACIDS NOS] [Suspect]
     Active Substance: AMINO ACIDS, SOURCE UNSPECIFIED
     Dosage: UNK
     Route: 042
     Dates: start: 20191008
  33. CALCIUM GLUCONATE. [Suspect]
     Active Substance: CALCIUM GLUCONATE
     Dosage: UNK
     Route: 042
     Dates: start: 20191008
  34. VITLIPID N [Suspect]
     Active Substance: ERGOCALCIFEROL\PHYTONADIONE\RETINOL\TOCOPHEROL
     Indication: PARENTERAL NUTRITION
     Route: 042
     Dates: start: 20191008
  35. PEDITRACE [Suspect]
     Active Substance: CUPRIC CHLORIDE\MANGANESE CHLORIDE\POTASSIUM IODIDE\SODIUM FLUORIDE\SODIUM SELENITE\ZINC CHLORIDE
     Dosage: UNK
     Route: 042
     Dates: start: 20191008
  36. AMINOVEN [Suspect]
     Active Substance: AMINO ACIDS, SOURCE UNSPECIFIED
     Dosage: UNK
     Route: 042
     Dates: start: 20191008
  37. SOLIVITO N [ASCORBIC ACID;BIOTIN;CYANOCOBALAMIN;FOLIC ACID;NICOTINAMID [Suspect]
     Active Substance: ASCORBIC ACID\BIOTIN\CYANOCOBALAMIN\FOLIC ACID\NIACINAMIDE\PANTOTHENIC ACID\PYRIDOXINE\RIBOFLAVIN\THIAMINE
     Dosage: UNK
     Route: 042
     Dates: start: 20191008

REACTIONS (11)
  - Acute respiratory failure [Fatal]
  - Recalled product administered [Unknown]
  - Product use in unapproved indication [Unknown]
  - Pulmonary hypertension [Fatal]
  - Escherichia sepsis [Fatal]
  - Multiple organ dysfunction syndrome [Fatal]
  - Septic shock [Fatal]
  - Manufacturing process control procedure issue [Unknown]
  - No adverse event [Unknown]
  - Circulatory collapse [Fatal]
  - Premature delivery [Fatal]

NARRATIVE: CASE EVENT DATE: 201910
